FAERS Safety Report 8609759-0 (Version None)
Quarter: 2012Q3

REPORT INFORMATION
  Report Type: 
  Country: None (occurrence: None)
  Receive Date: 20120821
  Receipt Date: 20120806
  Transmission Date: 20120928
  Serious: Yes (Hospitalization, Other)
  Sender: FDA-Public Use
  Company Number: CHPA2012US001544

PATIENT
  Sex: Female
  Weight: 54.422 kg

DRUGS (3)
  1. VITAMIN D [Concomitant]
     Dosage: UNK DF, UNK
  2. EXCEDRIN EXTRA STRENGTH CAPLETS [Suspect]
     Dosage: 2 DF, TID
     Route: 048
  3. EXCEDRIN EXTRA STRENGTH CAPLETS [Suspect]
     Dosage: UNK , UNK
     Route: 048

REACTIONS (68)
  - HEART RATE INCREASED [None]
  - WHITE BLOOD CELL COUNT INCREASED [None]
  - MEAN CELL HAEMOGLOBIN DECREASED [None]
  - INTERVERTEBRAL DISC DEGENERATION [None]
  - SPONDYLITIC MYELOPATHY [None]
  - SENSORY LOSS [None]
  - ACTIVITIES OF DAILY LIVING IMPAIRED [None]
  - HEPATIC CYST [None]
  - PAIN IN EXTREMITY [None]
  - PUPILLARY REFLEX IMPAIRED [None]
  - CONVULSION [None]
  - HYPOAESTHESIA [None]
  - INTERVERTEBRAL DISC PROTRUSION [None]
  - CEREBRAL SMALL VESSEL ISCHAEMIC DISEASE [None]
  - ARTHRALGIA [None]
  - HEAD INJURY [None]
  - CHOLELITHIASIS [None]
  - SPECIFIC GRAVITY URINE INCREASED [None]
  - PROTEIN TOTAL DECREASED [None]
  - ALANINE AMINOTRANSFERASE DECREASED [None]
  - EXERCISE TOLERANCE DECREASED [None]
  - DIZZINESS [None]
  - CERVICOBRACHIAL SYNDROME [None]
  - LUMBAR VERTEBRAL FRACTURE [None]
  - VIITH NERVE PARALYSIS [None]
  - MUSCULAR WEAKNESS [None]
  - JOINT INJURY [None]
  - LOW DENSITY LIPOPROTEIN INCREASED [None]
  - HAEMOGLOBIN DECREASED [None]
  - RED BLOOD CELL COUNT DECREASED [None]
  - ECCHYMOSIS [None]
  - PARTIAL SEIZURES [None]
  - FACIAL SPASM [None]
  - TREMOR [None]
  - PAIN [None]
  - CONFUSIONAL STATE [None]
  - NECK PAIN [None]
  - OEDEMA PERIPHERAL [None]
  - PEDAL PULSE DECREASED [None]
  - BALANCE DISORDER [None]
  - RESPIRATORY RATE INCREASED [None]
  - PLATELET COUNT INCREASED [None]
  - BLOOD URINE PRESENT [None]
  - BREATH SOUNDS ABNORMAL [None]
  - MIGRAINE [None]
  - CONTUSION [None]
  - SYRINGOMYELIA [None]
  - GAIT DISTURBANCE [None]
  - FALL [None]
  - DYSPNOEA [None]
  - BLOOD GLUCOSE INCREASED [None]
  - HAEMATOCRIT DECREASED [None]
  - DEPRESSION [None]
  - DIVERTICULUM INTESTINAL [None]
  - BLOOD PRESSURE INCREASED [None]
  - BLOOD UREA INCREASED [None]
  - MONOCYTE PERCENTAGE INCREASED [None]
  - BLOOD ALBUMIN DECREASED [None]
  - ATAXIA [None]
  - BACK PAIN [None]
  - EXCORIATION [None]
  - CERVICAL SPINAL STENOSIS [None]
  - AORTIC VALVE SCLEROSIS [None]
  - DYSARTHRIA [None]
  - FINE MOTOR DELAY [None]
  - HYPERHIDROSIS [None]
  - RED CELL DISTRIBUTION WIDTH INCREASED [None]
  - WEIGHT INCREASED [None]
